FAERS Safety Report 13035603 (Version 1)
Quarter: 2016Q4

REPORT INFORMATION
  Report Type: Spontaneous
  Country: US (occurrence: US)
  Receive Date: 20161216
  Receipt Date: 20161216
  Transmission Date: 20170207
  Serious: Yes (Other)
  Sender: FDA-Public Use
  Company Number: US-PFIZER INC-2016386568

PATIENT
  Age: 72 Year
  Sex: Female

DRUGS (38)
  1. AVASTIN [Concomitant]
     Active Substance: BEVACIZUMAB
     Dosage: 346 MG, (ONCE)
     Route: 042
     Dates: start: 20160512
  2. AVASTIN [Concomitant]
     Active Substance: BEVACIZUMAB
     Dosage: 346 MG, (ONCE)
     Route: 042
     Dates: start: 20160526
  3. OXYCODONE [Concomitant]
     Active Substance: OXYCODONE
     Indication: BREAKTHROUGH PAIN
     Dosage: 10 MG, UNK
  4. OXYCODONE [Concomitant]
     Active Substance: OXYCODONE
     Dosage: 10 MG, AS NEEDED [EVERY 6 HOURS]
     Route: 048
  5. MYCELEX [Concomitant]
     Active Substance: CLOTRIMAZOLE
     Dosage: 10 MG, MUCOUS MEMBRANE
     Route: 050
  6. NORMAL SALINE [Concomitant]
     Active Substance: SODIUM CHLORIDE
     Dosage: 1000 ML, UNK
     Route: 042
     Dates: start: 20160615
  7. SUTENT [Suspect]
     Active Substance: SUNITINIB MALATE
     Indication: LUNG NEOPLASM MALIGNANT
     Dosage: 25 MG, DAILY
     Route: 048
  8. AYR SALINE [Concomitant]
     Dosage: UNK, AS NEEDED (1 SPRAY INTRANASAL Q1 HOUR)
     Route: 045
     Dates: start: 20160614
  9. TYLENOL [Concomitant]
     Active Substance: ACETAMINOPHEN
     Dosage: 650 MG, 1X/DAY
     Route: 048
     Dates: start: 20160614
  10. BENADRYL [Concomitant]
     Active Substance: DIPHENHYDRAMINE HYDROCHLORIDE
     Dosage: 25 MG, (ONCE)
     Route: 042
     Dates: start: 20160512
  11. BACTRIM DS [Concomitant]
     Active Substance: SULFAMETHOXAZOLE\TRIMETHOPRIM
     Dosage: UNK (3 TIMES A WEEK)
  12. METOPROLOL TARTRATE. [Concomitant]
     Active Substance: METOPROLOL TARTRATE
     Dosage: UNK
     Route: 048
  13. ELIQUIS [Concomitant]
     Active Substance: APIXABAN
     Dosage: 5 MG, 2X/DAY
     Route: 048
  14. MEGACE [Concomitant]
     Active Substance: MEGESTROL ACETATE
     Dosage: 20 ML, DAILY [400MG/10ML]
     Route: 048
     Dates: start: 20160720
  15. OXYCONTIN [Concomitant]
     Active Substance: OXYCODONE HYDROCHLORIDE
     Dosage: 40 MG, 2X/DAY
  16. GEMFIBROZIL. [Concomitant]
     Active Substance: GEMFIBROZIL
     Dosage: 600 MG, 2X/DAY
     Route: 048
  17. TYLENOL [Concomitant]
     Active Substance: ACETAMINOPHEN
     Dosage: 650 MG, 1X/DAY
     Route: 048
     Dates: start: 20160630
  18. AVASTIN [Concomitant]
     Active Substance: BEVACIZUMAB
     Dosage: 346 MG, (ONCE)
     Route: 042
     Dates: start: 20160428
  19. DIFLUCAN [Concomitant]
     Active Substance: FLUCONAZOLE
     Dosage: 100 MG, AS NEEDED (1 TAB ORAL AS DIRECTED)
     Route: 048
     Dates: start: 20160613
  20. MIRALAX [Concomitant]
     Active Substance: POLYETHYLENE GLYCOL 3350
     Dosage: UNK
  21. AYR SALINE [Concomitant]
     Dosage: UNK
  22. OXYCONTIN [Concomitant]
     Active Substance: OXYCODONE HYDROCHLORIDE
     Dosage: 20 MG, 2X/DAY
  23. NORMAL SALINE [Concomitant]
     Active Substance: SODIUM CHLORIDE
     Dosage: 500 ML, 1X/DAY (500 ML, INJECTION ONCE)
     Dates: start: 20160714
  24. TYLENOL [Concomitant]
     Active Substance: ACETAMINOPHEN
     Dosage: 650 MG, (ONCE)
     Route: 048
     Dates: start: 20160414
  25. TYLENOL [Concomitant]
     Active Substance: ACETAMINOPHEN
     Dosage: 650 MG, (ONCE)
     Route: 048
     Dates: start: 20160512
  26. BENADRYL [Concomitant]
     Active Substance: DIPHENHYDRAMINE HYDROCHLORIDE
     Dosage: 25 MG, (ONCE)
     Route: 042
     Dates: start: 20160414
  27. FLECAINIDE [Concomitant]
     Active Substance: FLECAINIDE
     Dosage: 50 MG, 2X/DAY
     Route: 048
  28. TRAZODONE [Concomitant]
     Active Substance: TRAZODONE HYDROCHLORIDE
     Indication: SLEEP DISORDER
     Dosage: 50 MG, DAILY
     Route: 048
  29. ASPIRIN. [Concomitant]
     Active Substance: ASPIRIN
     Dosage: 81 MG, DAILY
     Route: 048
  30. LISINOPRIL AND HYDROCHLOROTHIAZIDE [Concomitant]
     Active Substance: HYDROCHLOROTHIAZIDE\LISINOPRIL
     Dosage: UNK UNK, DAILY [LISINOPRIL 10 MG-HYDROCHLOROTHIAZIDE 12.5 MG] 0.5 TAB
     Route: 048
  31. TYLENOL [Concomitant]
     Active Substance: ACETAMINOPHEN
     Dosage: 650 MG, (ONCE)
     Route: 048
     Dates: start: 20160526
  32. AVASTIN [Concomitant]
     Active Substance: BEVACIZUMAB
     Dosage: 346 MG, 1X/DAY
     Route: 042
     Dates: start: 20160614
  33. AVASTIN [Concomitant]
     Active Substance: BEVACIZUMAB
     Dosage: 346 MG, 1X/DAY
     Route: 042
     Dates: start: 20160630
  34. BENADRYL [Concomitant]
     Active Substance: DIPHENHYDRAMINE HYDROCHLORIDE
     Dosage: 25 MG, (ONCE)
     Route: 042
     Dates: start: 20160428
  35. OXYCODONE [Concomitant]
     Active Substance: OXYCODONE
     Dosage: 20 MG, 2X/DAY
  36. DOXYCYCLINE HYCLATE. [Concomitant]
     Active Substance: DOXYCYCLINE HYCLATE
     Dosage: 20 MG, 2X/DAY
     Route: 048
  37. TYLENOL [Concomitant]
     Active Substance: ACETAMINOPHEN
     Dosage: 650 MG, (ONCE)
     Route: 048
     Dates: start: 20160428
  38. AVASTIN [Concomitant]
     Active Substance: BEVACIZUMAB
     Dosage: 346 MG, (ONCE)
     Route: 042
     Dates: start: 20160414

REACTIONS (6)
  - Cytopenia [Unknown]
  - Energy increased [Unknown]
  - Product use issue [Unknown]
  - Therapeutic response unexpected [Unknown]
  - Pre-existing condition improved [Unknown]
  - Weight increased [Unknown]
